FAERS Safety Report 8288892-X (Version None)
Quarter: 2012Q2

REPORT INFORMATION
  Report Type: 
  Country: None (occurrence: None)
  Receive Date: 20120412
  Receipt Date: 20120328
  Transmission Date: 20120825
  Serious: Yes (Other)
  Sender: FDA-Public Use
  Company Number: FK201200970

PATIENT
  Age: 60 Year
  Sex: Male

DRUGS (9)
  1. POTASSIUM CHLORIDE [Suspect]
     Indication: PARENTERAL NUTRITION
     Dates: start: 20120307, end: 20120307
  2. ESOMEPRAZOLE MAGNESIUM [Suspect]
  3. PREGABALIN [Concomitant]
  4. DULOXETINE HYDROCHLORIDE [Concomitant]
  5. ENOXAPARIN SODIUM [Concomitant]
  6. OCTREOTIDE ACETATE [Concomitant]
  7. ADDAMEL N (TRACE ELEMENTS) (TRACE ELEMENTS) [Suspect]
     Indication: PARENTERAL NUTRITION
  8. CERNEVIT-12 [Concomitant]
  9. MIRTAZAPINE [Concomitant]

REACTIONS (3)
  - HYPERGLYCAEMIA [None]
  - DYSGEUSIA [None]
  - PARAESTHESIA [None]
